FAERS Safety Report 4523149-1 (Version None)
Quarter: 2004Q4

REPORT INFORMATION
  Report Type: 
  Country: None (occurrence: None)
  Receive Date: 20041206
  Receipt Date: 20041206
  Transmission Date: 20050328
  Serious: No
  Sender: FDA-Public Use
  Company Number: None

PATIENT
  Age: 41 Year
  Sex: Female
  Weight: 84.369 kg

DRUGS (10)
  1. ZOMETA [Suspect]
     Indication: METASTASES TO BONE
     Dosage: 4MG IN 0.9% NS 1X MONTH IN 100ML IV INFUSION
     Route: 042
     Dates: start: 20020509, end: 20040908
  2. LORTAB [Concomitant]
  3. NEXIUM [Concomitant]
  4. WELLBUTRIN XL [Concomitant]
  5. OXYCONTIN [Concomitant]
  6. GLUCOPHAGE [Concomitant]
  7. FASLODEX [Concomitant]
  8. HYZAAR [Concomitant]
  9. LIPITOR [Concomitant]
  10. NEURONTIN [Concomitant]

REACTIONS (1)
  - OSTEONECROSIS [None]
